FAERS Safety Report 24305465 (Version 3)
Quarter: 2024Q3

REPORT INFORMATION
  Report Type: Report from Study
  Country: US (occurrence: US)
  Receive Date: 20240911
  Receipt Date: 20240925
  Transmission Date: 20241017
  Serious: Yes (Hospitalization, Other)
  Sender: ABBVIE
  Company Number: US-ABBVIE-5914403

PATIENT
  Age: 50 Year
  Sex: Female
  Weight: 66 kg

DRUGS (1)
  1. RINVOQ [Suspect]
     Active Substance: UPADACITINIB
     Indication: Crohn^s disease
     Route: 048
     Dates: start: 20240814, end: 20240821

REACTIONS (11)
  - Haematochezia [Recovering/Resolving]
  - Back pain [Recovering/Resolving]
  - Vomiting [Recovering/Resolving]
  - Diarrhoea [Recovering/Resolving]
  - Procedural pain [Recovering/Resolving]
  - Hypophagia [Recovering/Resolving]
  - Nausea [Recovering/Resolving]
  - Proctalgia [Recovering/Resolving]
  - Abdominal pain [Recovering/Resolving]
  - Weight decreased [Not Recovered/Not Resolved]
  - Ileostomy [Recovering/Resolving]

NARRATIVE: CASE EVENT DATE: 20240726
